FAERS Safety Report 6075915-1 (Version None)
Quarter: 2009Q1

REPORT INFORMATION
  Report Type: 
  Country: None (occurrence: None)
  Receive Date: 20090209
  Receipt Date: 20090204
  Transmission Date: 20090719
  Serious: Yes (Hospitalization)
  Sender: FDA-Public Use
  Company Number: 1000003824

PATIENT
  Sex: Male

DRUGS (1)
  1. MEMANTINE HCL [Suspect]
     Dosage: 20 MG (20 MG, 1 IN 1 D)

REACTIONS (2)
  - CONFUSIONAL STATE [None]
  - FALL [None]
